FAERS Safety Report 15841601 (Version 6)
Quarter: 2020Q2

REPORT INFORMATION
  Report Type: Report from Study
  Country: IL (occurrence: IL)
  Receive Date: 20190118
  Receipt Date: 20200421
  Transmission Date: 20200713
  Serious: Yes (Hospitalization)
  Sender: FDA-Public Use
  Company Number: IL-ROCHE-2238757

PATIENT
  Age: 69 Year
  Sex: Female
  Weight: 56.3 kg

DRUGS (22)
  1. DEXACORT [DEXAMETHASONE] [Concomitant]
     Route: 042
     Dates: start: 20190219, end: 20190219
  2. LORATADIN [Concomitant]
     Active Substance: LORATADINE
     Route: 065
     Dates: start: 20181218, end: 20190402
  3. DEXACORT [DEXAMETHASONE] [Concomitant]
     Route: 042
     Dates: start: 20190110, end: 20190110
  4. DEXACORT [DEXAMETHASONE] [Concomitant]
     Route: 042
     Dates: start: 20190129, end: 20190129
  5. MACRODANTIN [Concomitant]
     Active Substance: NITROFURANTOIN
     Indication: URINARY TRACT INFECTION
     Route: 065
     Dates: start: 20190210, end: 20190216
  6. AUGMENTIN [Concomitant]
     Active Substance: AMOXICILLIN\CLAVULANATE POTASSIUM
     Indication: PYREXIA
     Route: 065
     Dates: start: 20181231, end: 20190105
  7. CARBOPLATIN. [Suspect]
     Active Substance: CARBOPLATIN
     Indication: OVARIAN CANCER
     Dosage: CARBOPLATIN AT A DOSE TO ACHIEVE A TARGET AREA UNDER THE CURVE (AUC) OF 6 (MG/ML/MIN).?DATE OF MOST
     Route: 042
     Dates: start: 20181218
  8. PALONOSETRON. [Concomitant]
     Active Substance: PALONOSETRON HYDROCHLORIDE
     Route: 065
     Dates: start: 20181218, end: 20190402
  9. CALCIUM 600+D3 [Concomitant]
     Active Substance: CALCIUM CARBONATE\VITAMIN D
     Indication: OSTEOARTHRITIS
     Route: 065
     Dates: start: 2016
  10. DERMACOMBIN [Concomitant]
     Indication: APHTHOUS ULCER
     Route: 061
     Dates: start: 20190121, end: 20190331
  11. GASTRO [FAMOTIDINE] [Concomitant]
     Indication: DYSPEPSIA
     Route: 065
     Dates: start: 20190117, end: 20190124
  12. AMIKIN [Concomitant]
     Active Substance: AMIKACIN SULFATE
     Indication: PYREXIA
     Route: 065
     Dates: start: 20181231, end: 20190104
  13. PACLITAXEL. [Suspect]
     Active Substance: PACLITAXEL
     Indication: OVARIAN CANCER
     Dosage: DATE OF MOST RECENT DOSE (280 MG) OF PACLITAXEL PRIOR TO SAE ONSET: 18/DEC/2018
     Route: 042
     Dates: start: 20181218
  14. BONDORMIN [Concomitant]
     Active Substance: BROTIZOLAM
     Indication: INSOMNIA
     Route: 065
     Dates: start: 20181120, end: 20191106
  15. ATEZOLIZUMAB. [Suspect]
     Active Substance: ATEZOLIZUMAB
     Indication: OVARIAN CANCER
     Dosage: DATE OF MOST RECENT DOSE OF ATEZOLIZUMAB PRIOR TO SAE ONSET: 18/DEC/2018
     Route: 042
     Dates: start: 20181218
  16. ZANTAC [Concomitant]
     Active Substance: RANITIDINE HYDROCHLORIDE
     Route: 065
     Dates: start: 20181218, end: 20190402
  17. DEXACORT [DEXAMETHASONE] [Concomitant]
     Route: 042
     Dates: start: 20190402, end: 20190402
  18. MIRTAZAPINE. [Concomitant]
     Active Substance: MIRTAZAPINE
     Indication: DEPRESSION
     Route: 065
     Dates: start: 20190429, end: 20191127
  19. DEXACORT [DEXAMETHASONE] [Concomitant]
     Route: 042
     Dates: start: 20181218, end: 20181218
  20. OMEPRADEX [Concomitant]
     Active Substance: OMEPRAZOLE
     Indication: DYSPEPSIA
     Route: 065
     Dates: start: 20190125, end: 20190212
  21. CARDILOC [Concomitant]
     Active Substance: BISOPROLOL FUMARATE
     Indication: SUPRAVENTRICULAR TACHYCARDIA
     Route: 065
     Dates: start: 201806
  22. DEXACORT [DEXAMETHASONE] [Concomitant]
     Route: 042
     Dates: start: 20190312, end: 20190312

REACTIONS (2)
  - Systemic immune activation [Recovered/Resolved]
  - Ovarian vein thrombosis [Recovered/Resolved]

NARRATIVE: CASE EVENT DATE: 20181231
